FAERS Safety Report 16137622 (Version 1)
Quarter: 2019Q1

REPORT INFORMATION
  Report Type: Spontaneous
  Country: US (occurrence: US)
  Receive Date: 20190330
  Receipt Date: 20190330
  Transmission Date: 20190418
  Serious: No
  Sender: FDA-Public Use
  Company Number: US-TEVA-2019-US-1021176

PATIENT
  Age: 89 Year
  Sex: Male

DRUGS (1)
  1. CICLOPIROX 1% [Suspect]
     Active Substance: CICLOPIROX
     Indication: SKIN DISORDER
     Route: 065
     Dates: end: 20190224

REACTIONS (2)
  - Pruritus [Unknown]
  - Inappropriate schedule of product administration [Unknown]
